FAERS Safety Report 24060444 (Version 1)
Quarter: 2024Q3

REPORT INFORMATION
  Report Type: Spontaneous
  Country: US (occurrence: US)
  Receive Date: 20240708
  Receipt Date: 20240708
  Transmission Date: 20241017
  Serious: Yes (Other)
  Sender: EPIC PHARM
  Company Number: US-EPICPHARMA-US-2024EPCLIT00799

PATIENT
  Age: 6 Year
  Sex: Male

DRUGS (1)
  1. ZOLEDRONIC ACID [Suspect]
     Active Substance: ZOLEDRONIC ACID
     Indication: Osteogenesis imperfecta
     Route: 042

REACTIONS (4)
  - Multiple fractures [Unknown]
  - Osteopetrosis [Unknown]
  - Product use in unapproved indication [Unknown]
  - Product use issue [Unknown]
